FAERS Safety Report 5871777-3 (Version None)
Quarter: 2008Q3

REPORT INFORMATION
  Report Type: 
  Country: None (occurrence: None)
  Receive Date: 20080905
  Receipt Date: 20080825
  Transmission Date: 20090109
  Serious: Yes (Other)
  Sender: FDA-Public Use
  Company Number: US-ROCHE-582602

PATIENT
  Age: 75 Year
  Sex: Female

DRUGS (3)
  1. BONIVA [Suspect]
     Indication: OSTEOPOROSIS
     Route: 048
     Dates: start: 20050101, end: 20070101
  2. BONIVA [Suspect]
     Dosage: FORMULATION: INJECTION
     Route: 042
     Dates: start: 20080401
  3. BENICAR [Concomitant]

REACTIONS (4)
  - DIVERTICULITIS [None]
  - DYSGEUSIA [None]
  - PAROSMIA [None]
  - TOOTHACHE [None]
